FAERS Safety Report 12134002 (Version 1)
Quarter: 2016Q1

REPORT INFORMATION
  Report Type: Spontaneous
  Country: US (occurrence: US)
  Receive Date: 20160301
  Receipt Date: 20160301
  Transmission Date: 20160526
  Serious: No
  Sender: FDA-Public Use
  Company Number: US-INSYS THERAPEUTICS, INC-INS201505-000202

PATIENT
  Age: 59 Year
  Sex: Female
  Weight: 73.93 kg

DRUGS (5)
  1. MORPHINE [Suspect]
     Active Substance: MORPHINE
  2. VALIUM [Concomitant]
     Active Substance: DIAZEPAM
  3. SUBSYS [Suspect]
     Active Substance: FENTANYL
     Indication: BACK PAIN
  4. MORPHINE [Suspect]
     Active Substance: MORPHINE
     Dates: start: 20150407, end: 20150509
  5. SUBSYS [Suspect]
     Active Substance: FENTANYL
     Indication: NECK PAIN
     Dates: start: 20150407

REACTIONS (5)
  - Drug withdrawal syndrome [Not Recovered/Not Resolved]
  - Gait disturbance [Not Recovered/Not Resolved]
  - Musculoskeletal pain [Not Recovered/Not Resolved]
  - Arthralgia [Not Recovered/Not Resolved]
  - Drug ineffective for unapproved indication [Unknown]

NARRATIVE: CASE EVENT DATE: 20150407
